FAERS Safety Report 16661191 (Version 1)
Quarter: 2019Q3

REPORT INFORMATION
  Report Type: Spontaneous
  Country: US (occurrence: US)
  Receive Date: 20190801
  Receipt Date: 20190801
  Transmission Date: 20191004
  Serious: Yes (Disabling)
  Sender: FDA-Public Use
  Company Number: None

PATIENT
  Age: 72 Year
  Sex: Female

DRUGS (2)
  1. GONIOTAIRE [Suspect]
     Active Substance: HYPROMELLOSE 2906 (4000 MPA.S)
     Indication: GONIOSCOPY
     Route: 047
     Dates: start: 20190717
  2. GONIOSOFT [Suspect]
     Active Substance: HYPROMELLOSES

REACTIONS (1)
  - Endophthalmitis [None]

NARRATIVE: CASE EVENT DATE: 20190717
